FAERS Safety Report 8071668-6 (Version None)
Quarter: 2012Q1

REPORT INFORMATION
  Report Type: 
  Country: None (occurrence: None)
  Receive Date: 20120125
  Receipt Date: 20120111
  Transmission Date: 20120608
  Serious: Yes (Other)
  Sender: FDA-Public Use
  Company Number: GB-ARROW GEN-2012-00571

PATIENT
  Age: 1 Hour
  Sex: Male
  Weight: 5 kg

DRUGS (3)
  1. LAMOTRIGINE [Suspect]
     Indication: PRODUCT USED FOR UNKNOWN INDICATION
     Dosage: 125 MG, UNKNOWN
     Route: 064
  2. ENTOCORT EC [Suspect]
     Indication: PRODUCT USED FOR UNKNOWN INDICATION
     Dosage: 2 DF, UNKNOWN
     Route: 064
  3. PNEUMOVAX II [Suspect]
     Indication: IMMUNISATION
     Dosage: UNK
     Route: 064
     Dates: start: 20110119, end: 20110119

REACTIONS (4)
  - FOETAL DISTRESS SYNDROME [None]
  - CAESAREAN SECTION [None]
  - FOETAL EXPOSURE DURING PREGNANCY [None]
  - MATERNAL DRUGS AFFECTING FOETUS [None]
